FAERS Safety Report 18397128 (Version 1)
Quarter: 2020Q4

REPORT INFORMATION
  Report Type: Spontaneous
  Country: IL (occurrence: IL)
  Receive Date: 20201019
  Receipt Date: 20201019
  Transmission Date: 20210114
  Serious: Yes (Other)
  Sender: FDA-Public Use
  Company Number: IL-AMGEN-ISRSP2020166314

PATIENT

DRUGS (1)
  1. CARFILZOMIB [Suspect]
     Active Substance: CARFILZOMIB
     Indication: PLASMA CELL MYELOMA
     Dosage: UNK
     Route: 065

REACTIONS (12)
  - Infection [Unknown]
  - Thrombocytopenia [Unknown]
  - Adverse event [Unknown]
  - Plasma cell myeloma [Unknown]
  - Nausea [Unknown]
  - Neutropenia [Unknown]
  - Therapy non-responder [Unknown]
  - Therapy partial responder [Unknown]
  - Diarrhoea [Unknown]
  - Vomiting [Unknown]
  - Cytopenia [Unknown]
  - Respiratory tract infection [Unknown]
